FAERS Safety Report 20909609 (Version 1)
Quarter: 2022Q2

REPORT INFORMATION
  Report Type: Report from Study
  Country: HU (occurrence: HU)
  Receive Date: 20220603
  Receipt Date: 20220603
  Transmission Date: 20220720
  Serious: Yes (Death)
  Sender: FDA-Public Use
  Company Number: HU-SUN PHARMACEUTICAL INDUSTRIES LTD-2021R1-310691

PATIENT
  Age: 4 Day

DRUGS (3)
  1. DIGOXIN [Suspect]
     Active Substance: DIGOXIN
     Indication: Supraventricular tachycardia
     Dosage: 3-5 MCG/KG, TID
     Route: 048
  2. DIGOXIN [Suspect]
     Active Substance: DIGOXIN
     Indication: Supraventricular tachycardia
     Dosage: 10-15 MCG/KG TID
     Route: 042
  3. DIGOXIN [Suspect]
     Active Substance: DIGOXIN
     Dosage: 3-5 MCG/KG, TID
     Route: 042

REACTIONS (2)
  - Arrhythmia [Fatal]
  - Sinus bradycardia [Fatal]
